FAERS Safety Report 4382599-7 (Version None)
Quarter: 2004Q2

REPORT INFORMATION
  Report Type: 
  Country: None (occurrence: None)
  Receive Date: 20040622
  Receipt Date: 20020611
  Transmission Date: 20050107
  Serious: Yes (Life-Threatening, Hospitalization, Other)
  Sender: FDA-Public Use
  Company Number: US-BRISTOL-MYERS SQUIBB COMPANY-11905429

PATIENT
  Age: 68 Year
  Sex: Male

DRUGS (5)
  1. BMS188667 [Concomitant]
     Dosage: -RECEIVED BLINDED THERAPY FROM 08-MAY-2001 TO 02-APR-2002.
     Route: 042
     Dates: start: 20020430
  2. METHOTREXATE [Suspect]
     Dates: start: 19990101
  3. MEDROL [Suspect]
     Dates: start: 19980101
  4. NAPROSYN [Concomitant]
     Dates: start: 19990101
  5. TRAMADOL HCL [Concomitant]
     Dates: start: 19990101

REACTIONS (3)
  - BRONCHOPNEUMONIA [None]
  - PERICARDITIS INFECTIVE [None]
  - PLEURISY [None]
